FAERS Safety Report 23486783 (Version 1)
Quarter: 2024Q1

REPORT INFORMATION
  Report Type: Spontaneous
  Country: CN (occurrence: CN)
  Receive Date: 20240206
  Receipt Date: 20240206
  Transmission Date: 20240410
  Serious: Yes (Other)
  Sender: FDA-Public Use
  Company Number: CN-PFIZER INC-PV202400016252

PATIENT
  Age: 6 Year
  Sex: Male
  Weight: 22.5 kg

DRUGS (4)
  1. CYTARABINE [Suspect]
     Active Substance: CYTARABINE
     Indication: Chemotherapy
     Dosage: 0.035 G, 1X/DAY
     Route: 037
     Dates: start: 20240114, end: 20240114
  2. METHOTREXATE SODIUM [Suspect]
     Active Substance: METHOTREXATE SODIUM
     Indication: Chemotherapy
     Dosage: 12.5 MG, 1X/DAY
     Route: 037
     Dates: start: 20240114, end: 20240114
  3. DEXAMETHASONE SODIUM PHOSPHATE [Concomitant]
     Active Substance: DEXAMETHASONE PHOSPHATE\DEXAMETHASONE SODIUM PHOSPHATE
     Indication: Chemotherapy
     Dosage: 5 MG, 1X/DAY
     Route: 037
     Dates: start: 20240114, end: 20240114
  4. SODIUM CHLORIDE [Concomitant]
     Active Substance: SODIUM CHLORIDE
     Indication: Chemotherapy
     Dosage: 1 ML, 1X/DAY
     Route: 037
     Dates: start: 20240114, end: 20240114

REACTIONS (1)
  - Liver injury [Unknown]

NARRATIVE: CASE EVENT DATE: 20240128
